FAERS Safety Report 8828132 (Version 2)
Quarter: 2013Q4

REPORT INFORMATION
  Report Type: Spontaneous
  Country: US (occurrence: US)
  Receive Date: 20121005
  Receipt Date: 20131101
  Transmission Date: 20140711
  Serious: Yes (Hospitalization)
  Sender: FDA-Public Use
  Company Number: US-JNJFOC-20120909866

PATIENT
  Age: 42 Year
  Sex: Female
  Weight: 74.39 kg

DRUGS (9)
  1. DURAGESIC [Suspect]
     Indication: PERIPHERAL NERVE INJURY
     Route: 062
     Dates: start: 20120920
  2. DURAGESIC [Suspect]
     Indication: PERIPHERAL NERVE INJURY
     Route: 062
     Dates: start: 2012, end: 201208
  3. DURAGESIC [Suspect]
     Indication: PERIPHERAL NERVE INJURY
     Route: 062
     Dates: start: 2012, end: 2012
  4. PERCOCET [Suspect]
     Indication: PAIN
     Dosage: 10/325 MG
     Route: 048
     Dates: start: 2005
  5. GABAPENTIN [Suspect]
     Indication: NEURALGIA
     Dosage: 10/325 MG
     Route: 048
     Dates: start: 2010
  6. SENNA [Concomitant]
     Indication: CONSTIPATION
     Route: 048
  7. SIMVASTATIN [Concomitant]
     Indication: BLOOD CHOLESTEROL
     Route: 048
     Dates: start: 2012
  8. BACLOFEN [Concomitant]
     Indication: MUSCLE RELAXANT THERAPY
     Route: 065
     Dates: start: 2011
  9. HYDROCHLOROTHIAZIDE [Concomitant]
     Indication: HYPERTENSION
     Route: 065
     Dates: start: 2012

REACTIONS (12)
  - Mass [Not Recovered/Not Resolved]
  - Pain [Not Recovered/Not Resolved]
  - Wrong technique in drug usage process [Unknown]
  - Product quality issue [Not Recovered/Not Resolved]
  - Drug ineffective [Recovering/Resolving]
  - Wrong technique in drug usage process [Recovered/Resolved]
  - Drug tolerance [Not Recovered/Not Resolved]
  - Constipation [Unknown]
  - Hyperhidrosis [Not Recovered/Not Resolved]
  - Product quality issue [Unknown]
  - Wrong technique in drug usage process [Recovered/Resolved]
  - Device leakage [Recovered/Resolved]
